FAERS Safety Report 13688408 (Version 1)
Quarter: 2017Q2

REPORT INFORMATION
  Report Type: Spontaneous
  Country: US (occurrence: US)
  Receive Date: 20170626
  Receipt Date: 20170626
  Transmission Date: 20170830
  Serious: Yes (Other)
  Sender: FDA-Public Use
  Company Number: US-ROCHE-1950208

PATIENT
  Age: 59 Year
  Sex: Male

DRUGS (15)
  1. VALIUM [Suspect]
     Active Substance: DIAZEPAM
     Indication: PRODUCT USED FOR UNKNOWN INDICATION
     Route: 048
  2. ZOFRAN [Concomitant]
     Active Substance: ONDANSETRON HYDROCHLORIDE
     Indication: VOMITING
  3. AVASTIN [Suspect]
     Active Substance: BEVACIZUMAB
     Route: 065
     Dates: start: 201212
  4. LASIX [Concomitant]
     Active Substance: FUROSEMIDE
     Route: 048
  5. SENNOSIDES. [Concomitant]
     Active Substance: SENNOSIDES
     Route: 065
  6. ESCITALOPRAM OXALATE. [Concomitant]
     Active Substance: ESCITALOPRAM OXALATE
     Route: 065
  7. AVASTIN [Suspect]
     Active Substance: BEVACIZUMAB
     Indication: RECTAL CANCER
     Route: 065
     Dates: end: 201203
  8. XELODA [Suspect]
     Active Substance: CAPECITABINE
     Indication: RECTAL CANCER
     Route: 065
     Dates: start: 201510
  9. ACYCLOVIR. [Concomitant]
     Active Substance: ACYCLOVIR
     Route: 065
  10. DOCUSATE SODIUM. [Concomitant]
     Active Substance: DOCUSATE SODIUM
     Route: 065
  11. CLOBETASOL PROPIONATE. [Concomitant]
     Active Substance: CLOBETASOL PROPIONATE
     Route: 065
  12. XARELTO [Concomitant]
     Active Substance: RIVAROXABAN
     Route: 048
  13. LYRICA [Concomitant]
     Active Substance: PREGABALIN
     Route: 065
  14. VITAMIN B6 [Concomitant]
     Active Substance: PYRIDOXINE HYDROCHLORIDE
     Route: 065
  15. ZOFRAN [Concomitant]
     Active Substance: ONDANSETRON HYDROCHLORIDE
     Indication: NAUSEA
     Route: 065

REACTIONS (8)
  - Metastases to lung [Unknown]
  - Bone neoplasm [Unknown]
  - Pneumonia aspiration [Unknown]
  - Deep vein thrombosis [Unknown]
  - Pelvic pain [Unknown]
  - Oedema [Unknown]
  - Neuropathy peripheral [Unknown]
  - Dyspnoea [Recovered/Resolved]
